FAERS Safety Report 6246052-8 (Version None)
Quarter: 2009Q2

REPORT INFORMATION
  Report Type: 
  Country: None (occurrence: None)
  Receive Date: 20090626
  Receipt Date: 20090225
  Transmission Date: 20091009
  Serious: Yes (Hospitalization)
  Sender: FDA-Public Use
  Company Number: A0762690A

PATIENT
  Age: 37 Year
  Sex: Male

DRUGS (2)
  1. IMITREX [Suspect]
     Indication: CLUSTER HEADACHE
     Route: 048
     Dates: start: 19980101
  2. NO CONCURRENT MEDICATION [Concomitant]

REACTIONS (1)
  - DRUG INEFFECTIVE [None]
